FAERS Safety Report 8394882-9 (Version None)
Quarter: 2012Q2

REPORT INFORMATION
  Report Type: 
  Country: None (occurrence: None)
  Receive Date: 20120530
  Receipt Date: 20120523
  Transmission Date: 20120825
  Serious: Yes (Life-Threatening)
  Sender: FDA-Public Use
  Company Number: US-ELI_LILLY_AND_COMPANY-US201205008764

PATIENT
  Sex: Female

DRUGS (2)
  1. EFFIENT [Suspect]
     Indication: ACUTE CORONARY SYNDROME
     Dosage: UNK UNK, LOADING DOSE
     Dates: start: 20110101
  2. ASPIRIN [Concomitant]

REACTIONS (2)
  - PERICARDIAL HAEMORRHAGE [None]
  - CORONARY ARTERY PERFORATION [None]
